FAERS Safety Report 20215525 (Version 1)
Quarter: 2021Q4

REPORT INFORMATION
  Report Type: Spontaneous
  Country: CN (occurrence: CN)
  Receive Date: 20211222
  Receipt Date: 20211222
  Transmission Date: 20220303
  Serious: Yes (Life-Threatening, Hospitalization, Other)
  Sender: FDA-Public Use
  Company Number: CN-Accord-247636

PATIENT
  Age: 38 Year
  Sex: Female

DRUGS (1)
  1. METHOTREXATE [Suspect]
     Active Substance: METHOTREXATE
     Indication: Ectopic pregnancy
     Dosage: LOW DOSE
     Route: 030
     Dates: start: 20190901

REACTIONS (21)
  - Anal inflammation [Recovering/Resolving]
  - Drug level increased [Recovered/Resolved]
  - Nausea [Recovering/Resolving]
  - Pyrexia [Recovering/Resolving]
  - Drug intolerance [Recovering/Resolving]
  - Neutropenia [Recovered/Resolved]
  - Hepatotoxicity [Recovered/Resolved]
  - Stomatitis [Recovering/Resolving]
  - Oropharyngeal pain [Recovering/Resolving]
  - Haematotoxicity [Recovered/Resolved]
  - Mucosal toxicity [Recovering/Resolving]
  - Vomiting [Recovering/Resolving]
  - Back pain [Recovering/Resolving]
  - Occult blood [Recovering/Resolving]
  - Alanine aminotransferase increased [Recovered/Resolved]
  - Diarrhoea [Recovering/Resolving]
  - Rash maculo-papular [Recovering/Resolving]
  - Myelosuppression [Recovered/Resolved]
  - Renal pain [Recovering/Resolving]
  - Ear swelling [Recovering/Resolving]
  - Thrombocytopenia [Recovered/Resolved]

NARRATIVE: CASE EVENT DATE: 20191001
